FAERS Safety Report 4396259-X (Version None)
Quarter: 2004Q3

REPORT INFORMATION
  Report Type: 
  Country: None (occurrence: None)
  Receive Date: 20040713
  Receipt Date: 20040705
  Transmission Date: 20050211
  Serious: Yes (Other)
  Sender: FDA-Public Use
  Company Number: PHFR2004GB02712

PATIENT
  Sex: Female

DRUGS (2)
  1. DIOVAN [Suspect]
     Dosage: 160MG/DAY
  2. DIOVAN [Suspect]
     Dosage: 40MG/DAY

REACTIONS (2)
  - HAEMOCHROMATOSIS [None]
  - SERUM FERRITIN INCREASED [None]
